FAERS Safety Report 13926394 (Version 1)
Quarter: 2017Q3

REPORT INFORMATION
  Report Type: Spontaneous
  Country: US (occurrence: None)
  Receive Date: 20170831
  Receipt Date: 20170831
  Transmission Date: 20171127
  Serious: Yes (Other)
  Sender: FDA-Public Use
  Company Number: None

PATIENT
  Age: 33 Year
  Sex: Female

DRUGS (2)
  1. MAKENA [Suspect]
     Active Substance: HYDROXYPROGESTERONE CAPROATE
     Indication: PRENATAL CARE
     Dosage: 250MG QW TM
     Route: 030
     Dates: start: 20170801
  2. PRENATAL [Concomitant]
     Active Substance: VITAMINS

REACTIONS (2)
  - Musculoskeletal disorder [None]
  - Therapy cessation [None]

NARRATIVE: CASE EVENT DATE: 201708
